FAERS Safety Report 7090669-8 (Version None)
Quarter: 2010Q4

REPORT INFORMATION
  Report Type: 
  Country: None (occurrence: None)
  Receive Date: 20101109
  Receipt Date: 20090501
  Transmission Date: 20110411
  Serious: No
  Sender: FDA-Public Use
  Company Number: US-KINGPHARMUSA00001-K200900524

PATIENT
  Sex: Female

DRUGS (1)
  1. FLECTOR [Suspect]
     Dosage: ONE-HALF PATCH ON EACH HEEL, SINGLE
     Route: 061
     Dates: start: 20090430, end: 20090430

REACTIONS (5)
  - DIZZINESS [None]
  - HYPERTENSION [None]
  - MALAISE [None]
  - TREMOR [None]
  - VOMITING [None]
